FAERS Safety Report 24024133 (Version 2)
Quarter: 2024Q2

REPORT INFORMATION
  Report Type: Report from Study
  Country: CO (occurrence: CO)
  Receive Date: 20240627
  Receipt Date: 20240628
  Transmission Date: 20240715
  Serious: No
  Sender: FDA-Public Use
  Company Number: CO-ROCHE-3218351

PATIENT
  Sex: Male
  Weight: 77.0 kg

DRUGS (94)
  1. ALECTINIB [Suspect]
     Active Substance: ALECTINIB
     Indication: Non-small cell lung cancer
     Route: 048
     Dates: start: 20211103
  2. PREDNISOLONE [Concomitant]
     Active Substance: PREDNISOLONE
     Indication: Rheumatoid arthritis
     Route: 048
     Dates: start: 202104
  3. PREDNISOLONE [Concomitant]
     Active Substance: PREDNISOLONE
     Dosage: FEBRILE SYNDROME AND SUSPECTED SEPSIS OF PULMONARY ORIGIN
     Route: 048
     Dates: start: 20220819
  4. PREDNISOLONE [Concomitant]
     Active Substance: PREDNISOLONE
     Route: 048
     Dates: start: 20220119, end: 20220627
  5. PREDNISOLONE [Concomitant]
     Active Substance: PREDNISOLONE
     Route: 048
     Dates: start: 20220628, end: 20220719
  6. PREDNISOLONE [Concomitant]
     Active Substance: PREDNISOLONE
     Route: 048
     Dates: start: 20220814, end: 20221007
  7. PREDNISOLONE [Concomitant]
     Active Substance: PREDNISOLONE
     Route: 048
     Dates: start: 20220720, end: 20220810
  8. PREDNISOLONE [Concomitant]
     Active Substance: PREDNISOLONE
     Route: 048
     Dates: start: 20221008
  9. PREDNISOLONE [Concomitant]
     Active Substance: PREDNISOLONE
     Route: 048
     Dates: start: 20220811, end: 20220813
  10. PREDNISOLONE [Concomitant]
     Active Substance: PREDNISOLONE
     Route: 048
     Dates: start: 20220119, end: 20220627
  11. CHLOROQUINE [Concomitant]
     Active Substance: CHLOROQUINE
     Indication: Rheumatoid arthritis
     Route: 048
     Dates: start: 202104
  12. CHLOROQUINE [Concomitant]
     Active Substance: CHLOROQUINE
     Route: 048
     Dates: start: 20211221, end: 20220818
  13. CHLOROQUINE [Concomitant]
     Active Substance: CHLOROQUINE
     Route: 048
     Dates: start: 20220910
  14. HYDROCODONE [Concomitant]
     Active Substance: HYDROCODONE
     Indication: Analgesic therapy
     Route: 048
  15. PREGABALIN [Concomitant]
     Active Substance: PREGABALIN
     Indication: Analgesic therapy
     Route: 048
  16. PREGABALIN [Concomitant]
     Active Substance: PREGABALIN
     Route: 048
     Dates: start: 20211104, end: 20220305
  17. PREGABALIN [Concomitant]
     Active Substance: PREGABALIN
     Route: 048
     Dates: start: 20220324, end: 20220909
  18. PREGABALIN [Concomitant]
     Active Substance: PREGABALIN
     Route: 048
     Dates: start: 20220910, end: 20220921
  19. PREGABALIN [Concomitant]
     Active Substance: PREGABALIN
     Route: 048
     Dates: start: 20220922, end: 20221003
  20. PREGABALIN [Concomitant]
     Active Substance: PREGABALIN
     Route: 048
     Dates: start: 20221004
  21. ACETAMINOPHEN [Concomitant]
     Active Substance: ACETAMINOPHEN
     Indication: Analgesic therapy
     Route: 048
  22. ACETAMINOPHEN [Concomitant]
     Active Substance: ACETAMINOPHEN
     Route: 048
     Dates: start: 202111
  23. DENOSUMAB [Concomitant]
     Active Substance: DENOSUMAB
     Indication: Prophylaxis
     Route: 058
     Dates: start: 20211201
  24. DENOSUMAB [Concomitant]
     Active Substance: DENOSUMAB
     Route: 058
     Dates: start: 20220302, end: 20220302
  25. DENOSUMAB [Concomitant]
     Active Substance: DENOSUMAB
     Route: 058
     Dates: start: 20220404, end: 20220404
  26. DENOSUMAB [Concomitant]
     Active Substance: DENOSUMAB
     Route: 058
     Dates: start: 20220504, end: 20220504
  27. DENOSUMAB [Concomitant]
     Active Substance: DENOSUMAB
     Route: 058
     Dates: start: 20220606, end: 20220606
  28. DENOSUMAB [Concomitant]
     Active Substance: DENOSUMAB
     Route: 058
     Dates: start: 20220714, end: 20220714
  29. DENOSUMAB [Concomitant]
     Active Substance: DENOSUMAB
     Route: 058
     Dates: start: 20220919, end: 20220919
  30. DENOSUMAB [Concomitant]
     Active Substance: DENOSUMAB
     Route: 058
     Dates: start: 20221005, end: 20221005
  31. METHOTREXATE [Concomitant]
     Active Substance: METHOTREXATE
     Indication: Rheumatoid arthritis
     Route: 048
     Dates: start: 20220127
  32. METHOTREXATE [Concomitant]
     Active Substance: METHOTREXATE
     Route: 048
     Dates: start: 20220326, end: 20220818
  33. METHOTREXATE [Concomitant]
     Active Substance: METHOTREXATE
     Route: 048
     Dates: start: 20211220, end: 20220224
  34. METHOTREXATE [Concomitant]
     Active Substance: METHOTREXATE
     Route: 048
     Dates: start: 20220225, end: 20220325
  35. METHOTREXATE [Concomitant]
     Active Substance: METHOTREXATE
     Route: 048
     Dates: start: 20211221, end: 20220224
  36. CALCIUM CITRATE\VITAMIN D [Concomitant]
     Active Substance: CALCIUM CITRATE\VITAMIN D
     Indication: Vitamin D deficiency
     Route: 048
     Dates: start: 202111
  37. CALCIUM CITRATE\VITAMIN D [Concomitant]
     Active Substance: CALCIUM CITRATE\VITAMIN D
     Route: 048
     Dates: start: 20211202, end: 20220811
  38. FOLIC ACID [Concomitant]
     Active Substance: FOLIC ACID
     Indication: Vitamin D deficiency
     Route: 048
     Dates: start: 202111
  39. BUPRENORPHINE [Concomitant]
     Active Substance: BUPRENORPHINE\BUPRENORPHINE HYDROCHLORIDE
     Indication: Intervertebral disc protrusion
     Dosage: FREQUENCY TEXT:Q3D
     Route: 062
     Dates: start: 202111
  40. BUPRENORPHINE [Concomitant]
     Active Substance: BUPRENORPHINE\BUPRENORPHINE HYDROCHLORIDE
     Dosage: FREQUENCY TEXT:Q3D
     Route: 062
     Dates: start: 20211204, end: 20220325
  41. BUPRENORPHINE [Concomitant]
     Active Substance: BUPRENORPHINE\BUPRENORPHINE HYDROCHLORIDE
     Dosage: FREQUENCY TEXT:Q3D
     Route: 062
     Dates: start: 20220326, end: 20220810
  42. BUPRENORPHINE [Concomitant]
     Active Substance: BUPRENORPHINE\BUPRENORPHINE HYDROCHLORIDE
     Dosage: FREQUENCY TEXT:Q3D
     Route: 062
     Dates: start: 20220811, end: 20220909
  43. BUPRENORPHINE [Concomitant]
     Active Substance: BUPRENORPHINE\BUPRENORPHINE HYDROCHLORIDE
     Dosage: FREQUENCY TEXT:Q3D
     Route: 062
     Dates: start: 20221010
  44. IPRATROPIUM BROMIDE [Concomitant]
     Active Substance: IPRATROPIUM BROMIDE\IPRATROPIUM BROMIDE ANHYDROUS
     Indication: Pyrexia
     Dosage: DOSE 2 PUFF SUSPECTED SEPSIS OF PULMONARY ORIGIN
     Route: 055
     Dates: start: 20220819, end: 20220821
  45. IPRATROPIUM BROMIDE [Concomitant]
     Active Substance: IPRATROPIUM BROMIDE\IPRATROPIUM BROMIDE ANHYDROUS
     Dosage: DOSE 2 PUFF SUSPECTED SEPSIS OF PULMONARY ORIGIN
     Route: 055
     Dates: start: 20220822
  46. ALBUTEROL [Concomitant]
     Active Substance: ALBUTEROL
     Indication: Pyrexia
     Dosage: DOSE 2 PUFF SUSPECTED SEPSIS OF PULMONARY ORIGIN
     Route: 055
     Dates: start: 20220819, end: 20220915
  47. ENOXAPARIN [Concomitant]
     Active Substance: ENOXAPARIN
     Indication: Pyrexia
     Dosage: SUSPECTED SEPSIS OF PULMONARY ORIGIN
     Route: 058
     Dates: start: 20220819, end: 20220826
  48. LINEZOLID [Concomitant]
     Active Substance: LINEZOLID
     Indication: Pyrexia
     Dosage: SUSPECTED SEPSIS OF PULMONARY ORIGIN
     Route: 042
     Dates: start: 20220819, end: 20220823
  49. LINEZOLID [Concomitant]
     Active Substance: LINEZOLID
     Dosage: FEBRILE SYNDROME
     Route: 042
     Dates: start: 20220819, end: 20220823
  50. PIPERACILLIN SODIUM [Concomitant]
     Active Substance: PIPERACILLIN SODIUM
     Indication: Pyrexia
     Dosage: SUSPECTED SEPSIS OF PULMONARY ORIGIN
     Route: 042
     Dates: start: 20220819, end: 20220824
  51. TAZOBACTAM SODIUM [Concomitant]
     Active Substance: TAZOBACTAM SODIUM
     Indication: Pyrexia
     Dosage: SUSPECTED SEPSIS OF PULMONARY ORIGIN
     Route: 042
     Dates: start: 20220819, end: 20220824
  52. DIHYDROCODEINE [Concomitant]
     Active Substance: DIHYDROCODEINE
     Indication: Pyrexia
     Dosage: SUSPECTED SEPSIS OF PULMONARY ORIGIN
     Route: 048
     Dates: start: 20220819
  53. OMEPRAZOLE [Concomitant]
     Active Substance: DONEPEZIL HYDROCHLORIDE\OMEPRAZOLE\OMEPRAZOLE MAGNESIUM
     Indication: Pyrexia
     Dosage: SUSPECTED SEPSIS OF PULMONARY ORIGIN
     Route: 048
     Dates: start: 20220819
  54. OMEPRAZOLE [Concomitant]
     Active Substance: DONEPEZIL HYDROCHLORIDE\OMEPRAZOLE\OMEPRAZOLE MAGNESIUM
     Indication: Dyspepsia
     Dosage: SUSPECTED SEPSIS OF PULMONARY ORIGIN?DYSPEPSIA
     Route: 048
     Dates: start: 20220819
  55. FLUTICASONE FUROATE [Concomitant]
     Active Substance: FLUTICASONE FUROATE
     Indication: Pyrexia
     Dosage: DOSE 4 INHALANTS SUSPECTED SEPSIS OF PULMONARY ORIGIN
     Route: 055
     Dates: start: 20220822
  56. HYDROMORPHONE [Concomitant]
     Active Substance: HYDROMORPHONE
     Indication: Pyrexia
     Dosage: SUSPECTED SEPSIS OF PULMONARY ORIGIN
     Route: 042
     Dates: start: 20220823, end: 20220825
  57. LOSARTAN [Concomitant]
     Active Substance: LOSARTAN
     Indication: Pyrexia
     Dosage: SUSPECTED SEPSIS OF PULMONARY ORIGIN
     Route: 048
     Dates: start: 20220825, end: 20220826
  58. LOSARTAN [Concomitant]
     Active Substance: LOSARTAN
     Dosage: HIGH BLOOD PRESSURE
     Route: 048
     Dates: start: 20220825, end: 20220915
  59. BEVACIZUMAB [Concomitant]
     Active Substance: BEVACIZUMAB
     Dates: start: 20220730, end: 20221026
  60. PACLITAXEL [Concomitant]
     Active Substance: PACLITAXEL
     Dates: start: 20220730, end: 20221026
  61. CARBOPLATIN [Concomitant]
     Active Substance: CARBOPLATIN
     Dates: start: 20220730, end: 20221026
  62. PEMETREXED [Concomitant]
     Active Substance: PEMETREXED
     Dates: start: 20220730, end: 20221026
  63. MORPHINE HYDROCHLORIDE [Concomitant]
     Active Substance: MORPHINE HYDROCHLORIDE
     Route: 048
     Dates: start: 20220810, end: 20220818
  64. MORPHINE HYDROCHLORIDE [Concomitant]
     Active Substance: MORPHINE HYDROCHLORIDE
     Route: 048
     Dates: start: 20220910
  65. LIDOCAINE HYDROCHLORIDE [Concomitant]
     Active Substance: LIDOCAINE HYDROCHLORIDE
     Route: 014
     Dates: start: 20220301, end: 20220301
  66. TRIAMCINOLONE ACETONIDE [Concomitant]
     Active Substance: TRIAMCINOLONE ACETONIDE
     Route: 014
     Dates: start: 20220301, end: 20220301
  67. CALCIUM CARBONATE [Concomitant]
     Active Substance: CALCIUM CARBONATE
     Indication: Vitamin D deficiency
     Route: 048
     Dates: start: 20220812
  68. CHOLECALCIFEROL [Concomitant]
     Active Substance: CHOLECALCIFEROL
     Indication: Vitamin D deficiency
     Route: 048
     Dates: start: 20220412, end: 20220622
  69. CHOLECALCIFEROL [Concomitant]
     Active Substance: CHOLECALCIFEROL
     Route: 048
     Dates: start: 20220623, end: 20220909
  70. CHOLECALCIFEROL [Concomitant]
     Active Substance: CHOLECALCIFEROL
     Route: 048
     Dates: start: 20220910
  71. ESOMEPRAZOLE [Concomitant]
     Active Substance: ESOMEPRAZOLE
     Indication: Dyspepsia
     Route: 048
     Dates: start: 20220107, end: 20220428
  72. ESOMEPRAZOLE [Concomitant]
     Active Substance: ESOMEPRAZOLE
     Route: 048
     Dates: start: 20220430, end: 20220818
  73. LACTULOSE [Concomitant]
     Active Substance: LACTULOSE
     Indication: Constipation
     Route: 048
     Dates: start: 20211104, end: 20220818
  74. DIHYDROCODEINE HYDROCHLORIDE [Concomitant]
     Active Substance: DIHYDROCODEINE HYDROCHLORIDE
     Indication: Cough
     Route: 048
     Dates: start: 20220502
  75. LORATADINE [Concomitant]
     Active Substance: LORATADINE
     Indication: Cough
     Route: 048
     Dates: start: 20220502, end: 20220615
  76. TRANEXAMIC ACID [Concomitant]
     Active Substance: TRANEXAMIC ACID
     Indication: Haemoptysis
     Route: 042
     Dates: start: 20220810, end: 20220810
  77. TRANEXAMIC ACID [Concomitant]
     Active Substance: TRANEXAMIC ACID
     Route: 042
     Dates: start: 20220812, end: 20220812
  78. TRANEXAMIC ACID [Concomitant]
     Active Substance: TRANEXAMIC ACID
     Route: 042
     Dates: start: 20220902, end: 20220902
  79. TRANEXAMIC ACID [Concomitant]
     Active Substance: TRANEXAMIC ACID
     Route: 042
     Dates: start: 20220921, end: 20220921
  80. TRANEXAMIC ACID [Concomitant]
     Active Substance: TRANEXAMIC ACID
     Route: 042
     Dates: start: 20220929, end: 20220929
  81. TRANEXAMIC ACID [Concomitant]
     Active Substance: TRANEXAMIC ACID
     Route: 048
     Dates: start: 20220812, end: 20220817
  82. IPRATROPIUM BROMIDE [Concomitant]
     Active Substance: IPRATROPIUM BROMIDE\IPRATROPIUM BROMIDE ANHYDROUS
     Indication: Pyrexia
     Route: 055
     Dates: start: 20220819, end: 20220821
  83. IPRATROPIUM BROMIDE [Concomitant]
     Active Substance: IPRATROPIUM BROMIDE\IPRATROPIUM BROMIDE ANHYDROUS
     Route: 055
     Dates: start: 20220822, end: 20220915
  84. ENOXAPARIN SODIUM [Concomitant]
     Active Substance: ENOXAPARIN SODIUM
     Route: 058
     Dates: start: 20220819, end: 20220826
  85. TAZOBACTAM SODIUM [Concomitant]
     Active Substance: TAZOBACTAM SODIUM
     Route: 058
     Dates: start: 20220819, end: 20220824
  86. CALCIUM POLYSTYRENE SULFONATE [Concomitant]
     Active Substance: CALCIUM POLYSTYRENE SULFONATE
     Route: 048
     Dates: start: 20220819, end: 20220821
  87. FLUTICASONE FUROATE [Concomitant]
     Active Substance: FLUTICASONE FUROATE
     Route: 055
     Dates: start: 20220822, end: 20220915
  88. DEXAMETHASONE [Concomitant]
     Active Substance: DEXAMETHASONE
     Route: 030
     Dates: start: 20220915, end: 20220920
  89. ONDANSETRON [Concomitant]
     Active Substance: ONDANSETRON
     Route: 030
     Dates: start: 20220921, end: 20220921
  90. ACYCLOVIR [Concomitant]
     Active Substance: ACYCLOVIR
     Route: 048
     Dates: start: 20220921, end: 20220928
  91. CLOTRIMAZOLE [Concomitant]
     Active Substance: CLOTRIMAZOLE
     Indication: Genital herpes
     Route: 061
     Dates: start: 20220921, end: 20220928
  92. APIXABAN [Concomitant]
     Active Substance: APIXABAN
     Indication: Deep vein thrombosis
     Route: 048
     Dates: start: 20220924, end: 20220929
  93. DALTEPARIN SODIUM [Concomitant]
     Active Substance: DALTEPARIN SODIUM
     Indication: Deep vein thrombosis
     Route: 058
     Dates: start: 20220930, end: 20221030
  94. DALTEPARIN SODIUM [Concomitant]
     Active Substance: DALTEPARIN SODIUM
     Route: 058
     Dates: start: 20221031

REACTIONS (1)
  - Left ventricular hypertrophy [Not Recovered/Not Resolved]

NARRATIVE: CASE EVENT DATE: 20220312
